FAERS Safety Report 23739403 (Version 1)
Quarter: 2024Q2

REPORT INFORMATION
  Report Type: Spontaneous
  Country: QA (occurrence: QA)
  Receive Date: 20240413
  Receipt Date: 20240413
  Transmission Date: 20240716
  Serious: Yes (Hospitalization, Other)
  Sender: FDA-Public Use
  Company Number: QA-STRIDES ARCOLAB LIMITED-2024SP004086

PATIENT
  Age: 52 Year
  Sex: Male

DRUGS (20)
  1. PREDNISOLONE [Suspect]
     Active Substance: PREDNISOLONE
     Indication: Diffuse large B-cell lymphoma stage II
     Dosage: UNK, CYCLICAL (FIRST CYCLE)
     Route: 065
     Dates: start: 20220623
  2. PREDNISOLONE [Suspect]
     Active Substance: PREDNISOLONE
     Dosage: UNK, CYCLICAL (SECOND CYCLE)
     Route: 065
     Dates: start: 20220717
  3. PREDNISOLONE [Suspect]
     Active Substance: PREDNISOLONE
     Dosage: UNK, CYCLICAL (THIRD CYCLE)
     Route: 065
     Dates: start: 2022
  4. PREDNISOLONE [Suspect]
     Active Substance: PREDNISOLONE
     Dosage: UNK, CYCLICAL (FOURTH CYCLE)
     Route: 065
     Dates: start: 20220911
  5. DOXORUBICIN [Suspect]
     Active Substance: DOXORUBICIN
     Indication: Diffuse large B-cell lymphoma stage II
     Dosage: UNK, CYCLICAL (FIRST CYCLE)
     Route: 065
     Dates: start: 20220623
  6. DOXORUBICIN [Suspect]
     Active Substance: DOXORUBICIN
     Dosage: UNK, CYCLICAL (SECOND CYCLE)
     Route: 065
     Dates: start: 20220717
  7. DOXORUBICIN [Suspect]
     Active Substance: DOXORUBICIN
     Dosage: UNK, CYCLICAL (THIRD CYCLE)
     Route: 065
     Dates: start: 2022
  8. DOXORUBICIN [Suspect]
     Active Substance: DOXORUBICIN
     Dosage: UNK, CYCLICAL (FOURTH CYCLE)
     Route: 065
     Dates: start: 20220911
  9. RITUXIMAB [Suspect]
     Active Substance: RITUXIMAB
     Indication: Diffuse large B-cell lymphoma stage II
     Dosage: UNK, CYCLICAL (FIRST CYCLE)
     Route: 065
     Dates: start: 20220623
  10. RITUXIMAB [Suspect]
     Active Substance: RITUXIMAB
     Dosage: UNK, CYCLICAL (SECOND CYCLE)
     Route: 065
     Dates: start: 20220717
  11. RITUXIMAB [Suspect]
     Active Substance: RITUXIMAB
     Dosage: UNK, CYCLICAL (THIRD CYCLE)
     Route: 065
     Dates: start: 2022
  12. RITUXIMAB [Suspect]
     Active Substance: RITUXIMAB
     Dosage: UNK, CYCLICAL (FOURTH CYCLE)
     Route: 065
     Dates: start: 20220911
  13. CYCLOPHOSPHAMIDE [Suspect]
     Active Substance: CYCLOPHOSPHAMIDE
     Indication: Diffuse large B-cell lymphoma stage II
     Dosage: UNK, CYCLICAL (FIRST CYCLE)
     Route: 065
     Dates: start: 20220623
  14. CYCLOPHOSPHAMIDE [Suspect]
     Active Substance: CYCLOPHOSPHAMIDE
     Dosage: UNK, CYCLICAL (SECOND CYCLE)
     Route: 065
     Dates: start: 20220717
  15. CYCLOPHOSPHAMIDE [Suspect]
     Active Substance: CYCLOPHOSPHAMIDE
     Dosage: UNK, CYCLICAL (THIRD CYCLE)
     Route: 065
     Dates: start: 2022
  16. CYCLOPHOSPHAMIDE [Suspect]
     Active Substance: CYCLOPHOSPHAMIDE
     Dosage: UNK, CYCLICAL (FOURTH CYCLE)
     Route: 065
     Dates: start: 20220911
  17. VINCRISTINE [Suspect]
     Active Substance: VINCRISTINE
     Indication: Diffuse large B-cell lymphoma stage II
     Dosage: UNK, CYCLICAL (REDUCED DOSE OF VINCRISTINE-FIRST CYCLE)
     Route: 065
     Dates: start: 20220623
  18. VINCRISTINE [Suspect]
     Active Substance: VINCRISTINE
     Dosage: UNK, CYCLICAL (SECOND CYCLE)
     Route: 065
     Dates: start: 20220717
  19. VINCRISTINE [Suspect]
     Active Substance: VINCRISTINE
     Dosage: UNK, CYCLICAL (THIRD CYCLE)
     Route: 065
     Dates: start: 2022
  20. VINCRISTINE [Suspect]
     Active Substance: VINCRISTINE
     Dosage: UNK, CYCLICAL (FOURTH CYCLE)
     Route: 065
     Dates: start: 20220911

REACTIONS (4)
  - Hyperkalaemia [Recovered/Resolved]
  - Acute kidney injury [Recovered/Resolved]
  - Superficial vein thrombosis [Unknown]
  - Cellulitis [Unknown]

NARRATIVE: CASE EVENT DATE: 20220101
